FAERS Safety Report 9819316 (Version 1)
Quarter: 2014Q1

REPORT INFORMATION
  Report Type: Report from Study
  Country: US (occurrence: US)
  Receive Date: 20140115
  Receipt Date: 20140115
  Transmission Date: 20141002
  Serious: Yes (Other)
  Sender: FDA-Public Use
  Company Number: US-ABBVIE-14P-163-1187037-00

PATIENT
  Sex: Female
  Weight: 53.57 kg

DRUGS (3)
  1. HUMIRA [Suspect]
     Indication: CROHN^S DISEASE
     Route: 058
     Dates: start: 201308, end: 201308
  2. HUMIRA [Suspect]
     Route: 058
     Dates: start: 201309, end: 201309
  3. HUMIRA [Suspect]
     Route: 058
     Dates: start: 201309, end: 201311

REACTIONS (1)
  - Fistula [Recovered/Resolved]
